FAERS Safety Report 11259634 (Version 1)
Quarter: 2015Q3

REPORT INFORMATION
  Report Type: Spontaneous
  Country: US (occurrence: None)
  Receive Date: 20150709
  Receipt Date: 20150709
  Transmission Date: 20151125
  Serious: Yes (Other)
  Sender: FDA-Public Use
  Company Number: None

PATIENT
  Age: 62 Year
  Sex: Female
  Weight: 68.04 kg

DRUGS (8)
  1. BABY ASPIRIN [Concomitant]
     Active Substance: ASPIRIN
  2. HUMULIN NOS [Suspect]
     Active Substance: INSULIN HUMAN
     Indication: TYPE 1 DIABETES MELLITUS
     Dosage: 37 UNITS GIVEN INTO/UNDER THE SKIN
     Dates: start: 20080510, end: 20150620
  3. RAMIPHIL [Concomitant]
  4. LITTLE CRITTERS CHILDREN^S VITAMIN [Concomitant]
  5. ASPIRIN. [Concomitant]
     Active Substance: ASPIRIN
  6. LANTUS [Concomitant]
     Active Substance: INSULIN GLARGINE
  7. BISOPROLOL 5MG (BISOPROLOL) UNKNOWN 5MG [Suspect]
     Active Substance: BISOPROLOL
     Indication: CARDIAC DISORDER
     Dosage: 1 PILL
     Route: 048
     Dates: start: 20080712, end: 20150606
  8. SYNTHROID [Concomitant]
     Active Substance: LEVOTHYROXINE SODIUM

REACTIONS (4)
  - Documented hypersensitivity to administered product [None]
  - Drug dose omission [None]
  - Dyspnoea [None]
  - Physical product label issue [None]
